FAERS Safety Report 13969476 (Version 1)
Quarter: 2017Q3

REPORT INFORMATION
  Report Type: Spontaneous
  Country: US (occurrence: US)
  Receive Date: 20170914
  Receipt Date: 20170914
  Transmission Date: 20171128
  Serious: No
  Sender: FDA-Public Use
  Company Number: US-ASTELLAS-2017US028740

PATIENT
  Sex: Male

DRUGS (1)
  1. XTANDI [Suspect]
     Active Substance: ENZALUTAMIDE
     Indication: PROSTATE CANCER METASTATIC
     Route: 065
     Dates: start: 20170607, end: 20170628

REACTIONS (5)
  - Decreased appetite [Unknown]
  - Peripheral swelling [Unknown]
  - Confusional state [Unknown]
  - Gait disturbance [Unknown]
  - Weight decreased [Unknown]
